FAERS Safety Report 5988346-7 (Version None)
Quarter: 2008Q4

REPORT INFORMATION
  Report Type: 
  Country: None (occurrence: None)
  Receive Date: 20081210
  Receipt Date: 20081130
  Transmission Date: 20090506
  Serious: Yes (Disabling)
  Sender: FDA-Public Use
  Company Number: IL-NOVOPROD-281979

PATIENT
  Age: 76 Year
  Sex: Male
  Weight: 90 kg

DRUGS (8)
  1. MIXTARD HUMAN 70/30 [Suspect]
     Indication: TYPE 2 DIABETES MELLITUS
     Dosage: UNK, QD
  2. OCSAAR PLUS [Concomitant]
     Dosage: 12.5 MG, QD
  3. DOXAZON [Concomitant]
     Dosage: 2 MG, QD
  4. COUMADIN [Concomitant]
     Dosage: 5 MG, PRN
  5. PROPAFENONE HCL [Concomitant]
     Dosage: 300 MG, TID
  6. PAROXETINE HCL [Concomitant]
     Dosage: 20 MG, QD
  7. OXAZEPAM [Concomitant]
     Dosage: 10 MG, QD
  8. LOSARTAN POTASSIUM [Concomitant]
     Dosage: 50 MG, QD

REACTIONS (1)
  - AMPUTATION [None]
